FAERS Safety Report 6796229-8 (Version None)
Quarter: 2010Q2

REPORT INFORMATION
  Report Type: 
  Country: None (occurrence: None)
  Receive Date: 20100624
  Receipt Date: 20100624
  Transmission Date: 20101027
  Serious: Yes (Life-Threatening, Hospitalization, Other)
  Sender: FDA-Public Use
  Company Number: None

PATIENT
  Age: 43 Year
  Sex: Male
  Weight: 108.8633 kg

DRUGS (1)
  1. LIORESAL [Suspect]
     Dosage: 92.23 24/7
     Dates: start: 20081114

REACTIONS (2)
  - MEDICAL DEVICE COMPLICATION [None]
  - OVERDOSE [None]
